FAERS Safety Report 16430271 (Version 1)
Quarter: 2019Q2

REPORT INFORMATION
  Report Type: Spontaneous
  Country: US (occurrence: US)
  Receive Date: 20190614
  Receipt Date: 20190614
  Transmission Date: 20190711
  Serious: No
  Sender: FDA-Public Use
  Company Number: US-TEVA-2019-US-1052674

PATIENT
  Sex: Male
  Weight: 88.53 kg

DRUGS (3)
  1. OXYBUTYNIN. [Suspect]
     Active Substance: OXYBUTYNIN CHLORIDE
     Indication: HYPERTONIC BLADDER
     Dosage: UNKNOWN MANUFACTURER
     Route: 065
  2. ELIQUIS [Suspect]
     Active Substance: APIXABAN
     Indication: ATRIAL FIBRILLATION
     Dosage: 2 DOSAGE FORMS DAILY; 1 IN THE MORNING AND 1 AT NIGHT, PROBABLY AT LEAST A YEAR AGO, OR MAYBE 2 YEAR
     Route: 048
  3. CARVEDILOL. [Suspect]
     Active Substance: CARVEDILOL
     Indication: BLOOD PRESSURE ABNORMAL
     Dosage: 2 DOSAGE FORMS DAILY; 1 IN THE MORNING AND 1 AT NIGHT, ONGOING. UNKNOWN MANUFACTURER
     Route: 048
     Dates: start: 2015

REACTIONS (1)
  - Dry mouth [Recovering/Resolving]
